FAERS Safety Report 24890933 (Version 1)
Quarter: 2025Q1

REPORT INFORMATION
  Report Type: Spontaneous
  Country: GB (occurrence: GB)
  Receive Date: 20250127
  Receipt Date: 20250127
  Transmission Date: 20250408
  Serious: Yes (Other)
  Sender: MYLAN
  Company Number: GB-MHRA-TPP23317898C8763430YC1737479673794

PATIENT
  Age: 85 Year
  Sex: Male
  Weight: 64 kg

DRUGS (17)
  1. DOXYCYCLINE [Suspect]
     Active Substance: DOXYCYCLINE
     Indication: Ill-defined disorder
     Dosage: 100 MILLIGRAM, QD (DAILY) (TWO NOW THEN ONE DAILY)
     Route: 065
     Dates: start: 20241231
  2. HYDROCORTISONE [Concomitant]
     Active Substance: HYDROCORTISONE
     Indication: Ill-defined disorder
     Dosage: UNK, BID (APPLY TWICE DAILY FOR 7DAYS)
     Route: 065
     Dates: start: 20241129, end: 20241206
  3. AMOXICILLIN [Concomitant]
     Active Substance: AMOXICILLIN
     Indication: Ill-defined disorder
     Dosage: 1 DOSAGE FORM, TID (TAKE ONE 3 TIMES/DAY)
     Route: 065
     Dates: start: 20250107, end: 20250112
  4. CLARITHROMYCIN [Concomitant]
     Active Substance: CLARITHROMYCIN
     Indication: Ill-defined disorder
     Dosage: 1 DOSAGE FORM, BID (TAKE ONE TABLET TWICE A DAY FOR 5 DAYS, TO TREA)
     Route: 065
     Dates: start: 20250114, end: 20250119
  5. LANSOPRAZOLE [Concomitant]
     Active Substance: LANSOPRAZOLE
     Indication: Ill-defined disorder
     Dosage: 1 DOSAGE FORM, QD (TAKE ONE ONCE DAILY)
     Route: 065
     Dates: start: 20250114
  6. PREDNISOLONE [Concomitant]
     Active Substance: PREDNISOLONE
     Indication: Ill-defined disorder
     Dosage: 6 DOSAGE FORM, QD (TAKE SIX DAILY FOR 5 DAYS)
     Route: 065
     Dates: start: 20250114, end: 20250119
  7. BENDROFLUMETHIAZIDE [Concomitant]
     Active Substance: BENDROFLUMETHIAZIDE
     Indication: Ill-defined disorder
     Dosage: 1 DOSAGE FORM, AM (ONE TO BE TAKEN IN THE MORNING)
     Route: 065
     Dates: start: 20240906, end: 20250114
  8. DOXAZOSIN [Concomitant]
     Active Substance: DOXAZOSIN MESYLATE
     Indication: Ill-defined disorder
     Dosage: 1 DOSAGE FORM, AM (ONE TO BE TAKEN IN THE MORNING)
     Route: 065
     Dates: start: 20240906
  9. FOLIC ACID [Concomitant]
     Active Substance: FOLIC ACID
     Indication: Ill-defined disorder
     Dosage: 1 DOSAGE FORM, QD (TAKE ONE DAILY)
     Route: 065
     Dates: start: 20240906
  10. ACETAMINOPHEN [Concomitant]
     Active Substance: ACETAMINOPHEN
     Indication: Ill-defined disorder
     Route: 065
     Dates: start: 20240906
  11. PROPRANOLOL [Concomitant]
     Active Substance: PROPRANOLOL HYDROCHLORIDE
     Indication: Ill-defined disorder
     Dosage: 1 DOSAGE FORM, AM (ONE TO BE TAKEN IN THE MORNING)
     Route: 065
     Dates: start: 20240906
  12. ALLEVYN GENTLE BORDER [Concomitant]
     Indication: Ill-defined disorder
     Route: 065
     Dates: start: 20250102, end: 20250103
  13. 3M CAVILON ANTIFUNGAL [Concomitant]
     Active Substance: MICONAZOLE NITRATE
     Indication: Ill-defined disorder
     Route: 065
     Dates: start: 20241224, end: 20241225
  14. 3M CAVILON ANTIFUNGAL [Concomitant]
     Active Substance: MICONAZOLE NITRATE
     Indication: Skin exfoliation
  15. Allevyn life [Concomitant]
     Indication: Ill-defined disorder
     Route: 065
     Dates: start: 20241216, end: 20241217
  16. FLAMINAL HYDRO [Concomitant]
     Indication: Ill-defined disorder
     Route: 065
     Dates: start: 20241127, end: 20241128
  17. Octenilin [Concomitant]
     Indication: Ill-defined disorder
     Route: 065
     Dates: start: 20250102, end: 20250103

REACTIONS (3)
  - Dizziness [Recovered/Resolved]
  - Balance disorder [Unknown]
  - Malaise [Unknown]
